FAERS Safety Report 8613686 (Version 2)
Quarter: 2012Q4

REPORT INFORMATION
  Report Type: 
  Country: US (occurrence: US)
  Receive Date: 20120614
  Receipt Date: 20121003
  Transmission Date: 20130627
  Serious: Yes (Death, Other)
  Sender: FDA-Public Use
  Company Number: US-ELI_LILLY_AND_COMPANY-US201206003072

PATIENT
  Age: 64 Year
  Sex: Male

DRUGS (7)
  1. EFFIENT [Suspect]
     Indication: STENT PLACEMENT
     Dosage: 60 mg, loading dose
     Route: 048
     Dates: start: 20120602, end: 20120602
  2. EFFIENT [Suspect]
     Dosage: 10 mg, qd
     Route: 048
     Dates: start: 20120603, end: 20120606
  3. ASA [Concomitant]
     Dosage: 325 mg, qd
  4. LOVENOX [Concomitant]
     Dosage: 100 mg, unknown
  5. COUMADIN [Concomitant]
     Dosage: 5 mg, UNK
  6. ANGIOMAX [Concomitant]
     Dosage: UNK
     Dates: end: 20120603
  7. HEPARIN [Concomitant]

REACTIONS (2)
  - Cerebral haematoma [Fatal]
  - Intracardiac thrombus [Unknown]
